FAERS Safety Report 6570381-1 (Version None)
Quarter: 2010Q1

REPORT INFORMATION
  Report Type: 
  Country: None (occurrence: None)
  Receive Date: 20100204
  Receipt Date: 20081209
  Transmission Date: 20100710
  Serious: No
  Sender: FDA-Public Use
  Company Number: A0759713A

PATIENT
  Age: 48 Year
  Sex: Female

DRUGS (3)
  1. ARIXTRA [Suspect]
     Dosage: 2.5MG PER DAY
     Route: 058
     Dates: start: 20081209
  2. LOVENOX [Concomitant]
  3. WARFARIN [Concomitant]

REACTIONS (5)
  - CHILLS [None]
  - INFLUENZA [None]
  - NERVOUSNESS [None]
  - PALPITATIONS [None]
  - TREMOR [None]
